FAERS Safety Report 5685378-3 (Version None)
Quarter: 2008Q1

REPORT INFORMATION
  Report Type: 
  Country: None (occurrence: None)
  Receive Date: 20080328
  Receipt Date: 20080319
  Transmission Date: 20080703
  Serious: Yes (Other)
  Sender: FDA-Public Use
  Company Number: US-PFIZER INC-2008025363

PATIENT
  Age: 40 Year
  Sex: Male

DRUGS (5)
  1. ATORVASTATIN CALCIUM [Suspect]
     Indication: DYSLIPIDAEMIA
     Dates: start: 20071101, end: 20080121
  2. KALETRA [Suspect]
     Indication: HIV INFECTION
     Dosage: TEXT:4 TABLET-FREQ:FREQUENCY: 2 TABLET, 2 IN 1 D
     Route: 048
  3. KALETRA [Suspect]
     Dosage: TEXT:6 CAPSULE-FREQ:FREQUENCY: 3 CAPSULE, 2 IN 1 D
     Dates: start: 20020201, end: 20060201
  4. ZALCITABINE [Concomitant]
     Route: 048
  5. ABACAVIR SULFATE [Concomitant]
     Route: 048

REACTIONS (4)
  - CUSHINGOID [None]
  - LIPOHYPERTROPHY [None]
  - MUSCULAR WEAKNESS [None]
  - MYOPATHY [None]
